FAERS Safety Report 21158015 (Version 1)
Quarter: 2022Q3

REPORT INFORMATION
  Report Type: Spontaneous
  Country: CN (occurrence: None)
  Receive Date: 20220801
  Receipt Date: 20220801
  Transmission Date: 20221026
  Serious: Yes (Other)
  Sender: FDA-Public Use
  Company Number: CN-ROCHE-3149764

PATIENT
  Age: 69 Year
  Sex: Male
  Weight: 80 kg

DRUGS (11)
  1. MABTHERA [Suspect]
     Active Substance: RITUXIMAB
     Indication: Mantle cell lymphoma
     Dosage: R-CHOP FOR 4 CYCLES, D0
     Route: 041
     Dates: start: 20190109, end: 20190401
  2. MABTHERA [Suspect]
     Active Substance: RITUXIMAB
     Dosage: D0
     Route: 041
     Dates: start: 202012
  3. GAZYVA [Suspect]
     Active Substance: OBINUTUZUMAB
     Indication: Mantle cell lymphoma
     Dosage: GB
     Route: 042
     Dates: start: 202203
  4. VINDESINE [Concomitant]
     Active Substance: VINDESINE
     Indication: Mantle cell lymphoma
     Dosage: R-CHOP FOR 4 CYCLES, D1
     Route: 041
     Dates: start: 20190109, end: 20190401
  5. EPIRUBICIN [Concomitant]
     Active Substance: EPIRUBICIN
     Indication: Mantle cell lymphoma
     Dosage: R-CHOP FOR 4 CYCLES, D1
     Route: 041
     Dates: start: 20190109, end: 20190401
  6. CYCLOPHOSPHAMIDE [Concomitant]
     Active Substance: CYCLOPHOSPHAMIDE
     Indication: Mantle cell lymphoma
     Dosage: R-CHOP FOR 4 CYCLES, D1
     Route: 041
     Dates: start: 20190109, end: 20190401
  7. PREDNISONE ACETATE [Concomitant]
     Active Substance: PREDNISONE ACETATE
     Indication: Mantle cell lymphoma
     Dosage: R-CHOP FOR 4 CYCLES, D1-5
     Route: 041
     Dates: start: 20190109, end: 20190401
  8. IBRUTINIB [Concomitant]
     Active Substance: IBRUTINIB
     Indication: Mantle cell lymphoma
     Route: 048
     Dates: start: 201905, end: 202003
  9. BORTEZOMIB [Concomitant]
     Active Substance: BORTEZOMIB
     Indication: Mantle cell lymphoma
     Dosage: D1, 4, 8, 11
     Route: 058
     Dates: start: 202012, end: 202108
  10. ZANUBRUTINIB [Concomitant]
     Active Substance: ZANUBRUTINIB
     Indication: Mantle cell lymphoma
     Route: 048
     Dates: start: 202109, end: 202202
  11. BENDAMUSTINE [Concomitant]
     Active Substance: BENDAMUSTINE
     Indication: Mantle cell lymphoma
     Dosage: D2-3
     Route: 048
     Dates: start: 202203

REACTIONS (4)
  - Off label use [Unknown]
  - Myelosuppression [Unknown]
  - Type 2 diabetes mellitus [Unknown]
  - Urinary tract infection [Unknown]
